FAERS Safety Report 5344086-9 (Version None)
Quarter: 2007Q2

REPORT INFORMATION
  Report Type: 
  Country: None (occurrence: None)
  Receive Date: 20070604
  Receipt Date: 20070529
  Transmission Date: 20071010
  Serious: Yes (Hospitalization)
  Sender: FDA-Public Use
  Company Number: B0471389A

PATIENT
  Age: 83 Year
  Sex: Female

DRUGS (3)
  1. VALTREX [Suspect]
     Indication: HERPES ZOSTER
     Dosage: 1G THREE TIMES PER DAY
     Route: 048
     Dates: start: 20070511
  2. CYANOCOBALAMIN [Concomitant]
     Route: 048
  3. CHINESE MEDICINE [Concomitant]
     Dosage: 2.5G THREE TIMES PER DAY
     Route: 048

REACTIONS (2)
  - MALAISE [None]
  - RENAL DISORDER [None]
